FAERS Safety Report 13937495 (Version 2)
Quarter: 2017Q4

REPORT INFORMATION
  Report Type: Report from Study
  Country: US (occurrence: US)
  Receive Date: 20170905
  Receipt Date: 20171002
  Transmission Date: 20180320
  Serious: Yes (Other)
  Sender: FDA-Public Use
  Company Number: US-BAYER-2017-163747

PATIENT
  Age: 67 Year
  Sex: Male
  Weight: 98.34 kg

DRUGS (19)
  1. TIMOLOL. [Concomitant]
     Active Substance: TIMOLOL
  2. ASPIRIN. [Concomitant]
     Active Substance: ASPIRIN
  3. XOFIGO [Suspect]
     Active Substance: RADIUM RA-223 DICHLORIDE
     Indication: METASTASES TO BONE
     Dosage: 146 ?CI, UNK
     Dates: start: 20170629
  4. HYDROCODONE [Concomitant]
     Active Substance: HYDROCODONE
  5. INSULIN [Concomitant]
     Active Substance: INSULIN NOS
  6. ZETIA [Concomitant]
     Active Substance: EZETIMIBE
  7. TRAVOPROST. [Concomitant]
     Active Substance: TRAVOPROST
  8. ATORVASTATIN [Concomitant]
     Active Substance: ATORVASTATIN
  9. NORCO [Concomitant]
     Active Substance: ACETAMINOPHEN\HYDROCODONE BITARTRATE
  10. AZOPT [Concomitant]
     Active Substance: BRINZOLAMIDE
  11. METFORMIN [Concomitant]
     Active Substance: METFORMIN HYDROCHLORIDE
  12. XOFIGO [Suspect]
     Active Substance: RADIUM RA-223 DICHLORIDE
     Indication: HORMONE-REFRACTORY PROSTATE CANCER
     Dosage: 148 ?CI, UNK
     Dates: start: 20170727
  13. OMEPRAZOLE. [Concomitant]
     Active Substance: OMEPRAZOLE
  14. TOPROL XL [Concomitant]
     Active Substance: METOPROLOL SUCCINATE
  15. LISINOPRIL AND HYDROCHLOROTHIAZIDE [Concomitant]
     Active Substance: HYDROCHLOROTHIAZIDE\LISINOPRIL
  16. TYLENOL [Concomitant]
     Active Substance: ACETAMINOPHEN
  17. XOFIGO [Suspect]
     Active Substance: RADIUM RA-223 DICHLORIDE
     Indication: HORMONE-REFRACTORY PROSTATE CANCER
     Dosage: 141.70 ?CI, ONCE EVERY 28 DAYS
     Route: 042
     Dates: start: 20170824
  18. OXYCODONE [Concomitant]
     Active Substance: OXYCODONE
  19. VITAMIN D [Concomitant]
     Active Substance: CHOLECALCIFEROL

REACTIONS (9)
  - Prostatic specific antigen increased [None]
  - Pain in extremity [Recovered/Resolved]
  - Musculoskeletal pain [Recovered/Resolved]
  - Diarrhoea [None]
  - Blister [Recovered/Resolved]
  - Neutrophilic dermatosis [Recovered/Resolved]
  - Condition aggravated [None]
  - Peripheral swelling [Recovered/Resolved]
  - Post inflammatory pigmentation change [None]

NARRATIVE: CASE EVENT DATE: 20170804
